FAERS Safety Report 9241812 (Version 1)
Quarter: 2013Q2

REPORT INFORMATION
  Report Type: Spontaneous
  Country: US (occurrence: US)
  Receive Date: 20130419
  Receipt Date: 20130419
  Transmission Date: 20140414
  Serious: No
  Sender: FDA-Public Use
  Company Number: US-TEVA-399072USA

PATIENT
  Sex: Female
  Weight: 52.21 kg

DRUGS (6)
  1. AZILECT [Suspect]
     Indication: PARKINSON^S DISEASE
     Route: 048
     Dates: start: 2012, end: 2012
  2. AZILECT [Suspect]
     Route: 048
     Dates: start: 201302
  3. LEVODOPA [Suspect]
     Indication: PARKINSON^S DISEASE
  4. SINEMET [Concomitant]
     Indication: PARKINSON^S DISEASE
  5. AMANTADINE [Concomitant]
     Indication: PARKINSON^S DISEASE
  6. CLONAZEPAM [Concomitant]
     Indication: ADVERSE REACTION

REACTIONS (1)
  - Weight decreased [Not Recovered/Not Resolved]
